FAERS Safety Report 21324200 (Version 1)
Quarter: 2022Q3

REPORT INFORMATION
  Report Type: Report from Study
  Country: US (occurrence: US)
  Receive Date: 20220912
  Receipt Date: 20220912
  Transmission Date: 20221026
  Serious: Yes (Hospitalization, Other)
  Sender: FDA-Public Use
  Company Number: US-TAKEDA-US201904142

PATIENT
  Age: 59 Year
  Sex: Male
  Weight: 82.54 kg

DRUGS (13)
  1. TEDUGLUTIDE [Suspect]
     Active Substance: TEDUGLUTIDE
     Indication: Short-bowel syndrome
     Dosage: 4.5 MILLIGRAM
     Route: 042
     Dates: end: 20200207
  2. TEDUGLUTIDE [Suspect]
     Active Substance: TEDUGLUTIDE
     Indication: Short-bowel syndrome
     Dosage: 4.5 MILLIGRAM
     Route: 042
     Dates: end: 20200207
  3. TEDUGLUTIDE [Suspect]
     Active Substance: TEDUGLUTIDE
     Indication: Short-bowel syndrome
     Dosage: 4.5 MILLIGRAM
     Route: 042
     Dates: end: 20200207
  4. TEDUGLUTIDE [Suspect]
     Active Substance: TEDUGLUTIDE
     Indication: Short-bowel syndrome
     Dosage: 4.5 MILLIGRAM
     Route: 042
     Dates: end: 20200207
  5. TEDUGLUTIDE [Suspect]
     Active Substance: TEDUGLUTIDE
     Dosage: 2.5 MILLIGRAM
     Route: 042
     Dates: end: 20200819
  6. TEDUGLUTIDE [Suspect]
     Active Substance: TEDUGLUTIDE
     Dosage: 2.5 MILLIGRAM
     Route: 042
     Dates: end: 20200819
  7. TEDUGLUTIDE [Suspect]
     Active Substance: TEDUGLUTIDE
     Dosage: 2.5 MILLIGRAM
     Route: 042
     Dates: end: 20200819
  8. TEDUGLUTIDE [Suspect]
     Active Substance: TEDUGLUTIDE
     Dosage: 2.5 MILLIGRAM
     Route: 042
     Dates: end: 20200819
  9. OXYGEN [Concomitant]
     Active Substance: OXYGEN
     Indication: Cardiac failure congestive
  10. VANCOCIN [Concomitant]
     Active Substance: VANCOMYCIN HYDROCHLORIDE
     Indication: Subcutaneous abscess
  11. VANCOCIN [Concomitant]
     Active Substance: VANCOMYCIN HYDROCHLORIDE
     Indication: Antibiotic therapy
  12. MORPHINE [Concomitant]
     Active Substance: MORPHINE
     Indication: Pain
  13. MORPHINE [Concomitant]
     Active Substance: MORPHINE
     Indication: Subcutaneous abscess

REACTIONS (2)
  - False positive investigation result [Recovered/Resolved]
  - Bacteraemia [Recovered/Resolved]

NARRATIVE: CASE EVENT DATE: 20181203
